FAERS Safety Report 12263196 (Version 1)
Quarter: 2016Q2

REPORT INFORMATION
  Report Type: Spontaneous
  Country: US (occurrence: US)
  Receive Date: 20160413
  Receipt Date: 20160413
  Transmission Date: 20160815
  Serious: Yes (Other)
  Sender: FDA-Public Use
  Company Number: US-JNJFOC-20160405352

PATIENT
  Age: 85 Year
  Sex: Female
  Weight: 53.07 kg

DRUGS (2)
  1. WOMENS ROGAINE [Suspect]
     Active Substance: MINOXIDIL
     Route: 061
  2. WOMENS ROGAINE [Suspect]
     Active Substance: MINOXIDIL
     Indication: ALOPECIA
     Route: 061
     Dates: end: 201510

REACTIONS (2)
  - Pulmonary hypertension [Not Recovered/Not Resolved]
  - Inappropriate schedule of drug administration [Unknown]
